FAERS Safety Report 20891629 (Version 1)
Quarter: 2022Q2

REPORT INFORMATION
  Report Type: Report from Study
  Country: EG (occurrence: EG)
  Receive Date: 20220530
  Receipt Date: 20220530
  Transmission Date: 20220721
  Serious: Yes (Hospitalization, Other)
  Sender: FDA-Public Use
  Company Number: EG-NOVARTISPH-NVSC2022EG120408

PATIENT
  Age: 39 Year
  Sex: Male

DRUGS (2)
  1. GILENYA [Suspect]
     Active Substance: FINGOLIMOD HYDROCHLORIDE
     Indication: Multiple sclerosis
     Dosage: UNK
     Route: 048
  2. GILENYA [Suspect]
     Active Substance: FINGOLIMOD HYDROCHLORIDE
     Dosage: 1 DOSAGE FORM, QD
     Route: 065
     Dates: start: 202110

REACTIONS (5)
  - Hypoaesthesia [Recovering/Resolving]
  - Urinary incontinence [Recovering/Resolving]
  - Multiple sclerosis relapse [Unknown]
  - Depression [Not Recovered/Not Resolved]
  - Phobia [Not Recovered/Not Resolved]

NARRATIVE: CASE EVENT DATE: 20211001
